FAERS Safety Report 21926140 (Version 2)
Quarter: 2023Q1

REPORT INFORMATION
  Report Type: Spontaneous
  Country: FR (occurrence: FR)
  Receive Date: 20230130
  Receipt Date: 20230202
  Transmission Date: 20230418
  Serious: Yes (Hospitalization)
  Sender: FDA-Public Use
  Company Number: None

PATIENT
  Age: 29 Year
  Sex: Male
  Weight: 60 kg

DRUGS (8)
  1. EXJADE [Suspect]
     Active Substance: DEFERASIROX
     Indication: Haemochromatosis
     Dosage: 4 DOSAGE FORM, QD
     Route: 048
     Dates: end: 20221102
  2. WARFARIN SODIUM [Suspect]
     Active Substance: WARFARIN SODIUM
     Indication: Thrombosis prophylaxis
     Dosage: UNK (5 MG 1 JOUR SUR 2, 6 MG 1 JOUR SUR 2)
     Route: 048
     Dates: end: 20221102
  3. WARFARIN SODIUM [Suspect]
     Active Substance: WARFARIN SODIUM
     Dosage: 5 MG, QD
     Route: 048
     Dates: start: 20221114, end: 20221122
  4. WARFARIN SODIUM [Suspect]
     Active Substance: WARFARIN SODIUM
     Dosage: 6 MG, QD
     Route: 048
     Dates: start: 20221122
  5. WARFARIN SODIUM [Suspect]
     Active Substance: WARFARIN SODIUM
     Dosage: UNK (5 MG 1 JOUR SUR 2, 6 MG 1 JOUR SUR 2)
     Route: 048
     Dates: start: 202212
  6. BISOPROLOL FUMARATE\PERINDOPRIL ARGININE [Concomitant]
     Active Substance: BISOPROLOL FUMARATE\PERINDOPRIL ARGININE
     Indication: Cardiac failure
     Dosage: 1 DOSAGE FORM, QD
     Route: 048
  7. FERRIPROX [Concomitant]
     Active Substance: DEFERIPRONE
     Indication: Haemochromatosis
     Dosage: 6 DOSAGE FORM, QD
     Route: 048
  8. ALDACTONE [Concomitant]
     Active Substance: SPIRONOLACTONE
     Indication: Cardiac failure
     Dosage: 1 DOSAGE FORM, QD (FORMULATION: DIVISIBLE COATED TABLET)
     Route: 048

REACTIONS (3)
  - Blood loss anaemia [Recovered/Resolved]
  - Melaena [Recovered/Resolved]
  - Peptic ulcer [Recovering/Resolving]

NARRATIVE: CASE EVENT DATE: 20221101
